FAERS Safety Report 23524183 (Version 1)
Quarter: 2024Q1

REPORT INFORMATION
  Report Type: Spontaneous
  Country: US (occurrence: US)
  Receive Date: 20240214
  Receipt Date: 20240214
  Transmission Date: 20240410
  Serious: Yes (Other)
  Sender: FDA-Public Use
  Company Number: US-EPIHEALTH-2024-US-008544

PATIENT
  Age: 63 Year
  Sex: Female

DRUGS (8)
  1. MINOCYCLINE HYDROCHLORIDE [Suspect]
     Active Substance: MINOCYCLINE HYDROCHLORIDE
     Indication: Lyme arthritis
     Dosage: UNKNOWN
     Route: 065
  2. CEFDINIR [Suspect]
     Active Substance: CEFDINIR
     Indication: Lyme arthritis
     Dosage: UNKNOWN
     Route: 065
  3. COTRIMOXAZOLE [Suspect]
     Active Substance: SULFAMETHOXAZOLE\TRIMETHOPRIM
     Indication: Lyme arthritis
     Dosage: UNKNOWN
     Route: 065
  4. METRONIDAZOLE [Suspect]
     Active Substance: METRONIDAZOLE
     Indication: Lyme arthritis
     Dosage: UNKNOWN
     Route: 065
  5. BACTRIM [Concomitant]
     Active Substance: SULFAMETHOXAZOLE\TRIMETHOPRIM
     Indication: Lyme arthritis
     Dosage: UNKNOWN
     Route: 065
  6. LAMICTAL [Concomitant]
     Active Substance: LAMOTRIGINE
     Indication: Lyme arthritis
     Dosage: UNKNOWN
     Route: 065
  7. MALARONE [Concomitant]
     Active Substance: ATOVAQUONE\PROGUANIL HYDROCHLORIDE
     Dosage: UNKNOWN
     Route: 065
  8. Artemisinins [Concomitant]
     Indication: Lyme arthritis
     Dosage: UNKNOWN
     Route: 065

REACTIONS (2)
  - Vanishing bile duct syndrome [Not Recovered/Not Resolved]
  - Drug ineffective [Unknown]
